FAERS Safety Report 6704233-0 (Version None)
Quarter: 2010Q2

REPORT INFORMATION
  Report Type: 
  Country: None (occurrence: None)
  Receive Date: 20100430
  Receipt Date: 20100420
  Transmission Date: 20101027
  Serious: Yes (Hospitalization)
  Sender: FDA-Public Use
  Company Number: AU-WATSON-2010-05697

PATIENT
  Age: 48 Year
  Sex: Male

DRUGS (3)
  1. TOPIRAMATE [Suspect]
     Indication: EPILEPSY
     Dosage: 100 MG, BID
  2. POSACONAZOLE [Suspect]
     Indication: ASPERGILLOMA
     Dosage: 200 MG, QID
  3. VALPROATE BISMUTH [Suspect]
     Indication: EPILEPSY
     Dosage: 700 MG, BID

REACTIONS (2)
  - DRUG INTERACTION [None]
  - DRUG TOXICITY [None]
